FAERS Safety Report 9403804 (Version 1)
Quarter: 2013Q3

REPORT INFORMATION
  Report Type: Spontaneous
  Country: US (occurrence: US)
  Receive Date: 20130717
  Receipt Date: 20130717
  Transmission Date: 20140515
  Serious: Yes (Other)
  Sender: FDA-Public Use
  Company Number: US-BIOGENIDEC-2013BI063904

PATIENT
  Sex: Female

DRUGS (1)
  1. AVONEX [Suspect]
     Indication: MULTIPLE SCLEROSIS
     Route: 030
     Dates: start: 20110617

REACTIONS (5)
  - Sarcoidosis [Unknown]
  - Lymphadenopathy [Unknown]
  - Gait disturbance [Unknown]
  - Stress [Unknown]
  - Multiple sclerosis [Unknown]
